FAERS Safety Report 21004917 (Version 1)
Quarter: 2022Q2

REPORT INFORMATION
  Report Type: Other
  Country: None (occurrence: US)
  Receive Date: 20220624
  Receipt Date: 20220624
  Transmission Date: 20220721
  Serious: No
  Sender: FDA-Public Use
  Company Number: US-Ascent Pharmaceuticals, Inc.-2130256

PATIENT
  Age: 65 Year

DRUGS (3)
  1. DEXTROAMPHET SACCHARAT, AMPHET ASPARTATE, DEXTROAMPHET SULFATE AND AMP [Suspect]
     Active Substance: AMPHETAMINE ASPARTATE\AMPHETAMINE SULFATE\DEXTROAMPHETAMINE SACCHARATE\DEXTROAMPHETAMINE SULFATE
     Indication: Narcolepsy
     Route: 065
  2. DESVENLAFAXINE [Concomitant]
     Active Substance: DESVENLAFAXINE
     Route: 065
  3. BUPROPION [Concomitant]
     Active Substance: BUPROPION
     Route: 065

REACTIONS (9)
  - Product substitution issue [Unknown]
  - Drug ineffective [Unknown]
  - Depression [Unknown]
  - Fatigue [Unknown]
  - Heart rate increased [Unknown]
  - Asthenia [Unknown]
  - Non-cardiac chest pain [Unknown]
  - Somnolence [Unknown]
  - Apathy [Unknown]
